FAERS Safety Report 22115812 (Version 1)
Quarter: 2023Q1

REPORT INFORMATION
  Report Type: Spontaneous
  Country: US (occurrence: None)
  Receive Date: 20230319
  Receipt Date: 20230319
  Transmission Date: 20230417
  Serious: Yes (Disabling)
  Sender: FDA-Public Use
  Company Number: None

PATIENT
  Age: 39 Year
  Sex: Male
  Weight: 71.55 kg

DRUGS (2)
  1. FLUVOXAMINE [Suspect]
     Active Substance: FLUVOXAMINE
     Indication: Obsessive-compulsive disorder
     Dosage: FREQUENCY : TWICE A DAY;?
     Route: 048
     Dates: start: 20230224
  2. Trazondine [Concomitant]

REACTIONS (4)
  - Abnormal dreams [None]
  - Fatigue [None]
  - Loss of personal independence in daily activities [None]
  - Insomnia [None]

NARRATIVE: CASE EVENT DATE: 20230224
